FAERS Safety Report 19378989 (Version 3)
Quarter: 2021Q3

REPORT INFORMATION
  Report Type: Spontaneous
  Country: US (occurrence: US)
  Receive Date: 20210606
  Receipt Date: 20210723
  Transmission Date: 20211014
  Serious: Yes (Life-Threatening, Hospitalization, Other)
  Sender: FDA-Public Use
  Company Number: US-ASTRAZENECA-2021A489729

PATIENT
  Age: 28961 Day
  Sex: Female
  Weight: 72.6 kg

DRUGS (2)
  1. TAGRISSO [Suspect]
     Active Substance: OSIMERTINIB
     Indication: NEOPLASM MALIGNANT
     Route: 048
     Dates: start: 20210305, end: 20210403
  2. TAGRISSO [Suspect]
     Active Substance: OSIMERTINIB
     Indication: NEOPLASM MALIGNANT
     Route: 048
     Dates: start: 20210402, end: 20210402

REACTIONS (7)
  - Tongue eruption [Recovering/Resolving]
  - Anaphylactic shock [Recovered/Resolved]
  - Obstructive airways disorder [Recovering/Resolving]
  - Rash [Recovered/Resolved]
  - Dyspnoea [Unknown]
  - Swollen tongue [Recovering/Resolving]
  - Urticaria [Unknown]

NARRATIVE: CASE EVENT DATE: 20210325
